FAERS Safety Report 5880167-9 (Version None)
Quarter: 2008Q3

REPORT INFORMATION
  Report Type: 
  Country: None (occurrence: None)
  Receive Date: 20080912
  Receipt Date: 20080901
  Transmission Date: 20090109
  Serious: Yes (Other)
  Sender: FDA-Public Use
  Company Number: US-PFIZER INC-2008073992

PATIENT
  Sex: Female
  Weight: 77 kg

DRUGS (11)
  1. CHANTIX [Suspect]
     Indication: SMOKING CESSATION THERAPY
     Dates: start: 20080701
  2. SEROQUEL [Concomitant]
  3. PROVIGIL [Concomitant]
  4. NEURONTIN [Concomitant]
  5. VALIUM [Concomitant]
  6. HYDROMORPHONE HCL [Concomitant]
  7. LISINOPRIL [Concomitant]
  8. VITAMIN TAB [Concomitant]
  9. FLECTOR [Concomitant]
  10. ALL OTHER THERAPEUTIC PRODUCTS [Concomitant]
  11. DENAVIR [Concomitant]

REACTIONS (8)
  - DEPRESSION [None]
  - DRUG DOSE OMISSION [None]
  - FACIAL PALSY [None]
  - HYPOAESTHESIA FACIAL [None]
  - HYPOAESTHESIA ORAL [None]
  - MUSCLE TWITCHING [None]
  - SUICIDAL IDEATION [None]
  - TRANSIENT ISCHAEMIC ATTACK [None]
